FAERS Safety Report 4575364-9 (Version None)
Quarter: 2004Q4

REPORT INFORMATION
  Report Type: 
  Country: None (occurrence: None)
  Receive Date: 20040927
  Receipt Date: 20040927
  Transmission Date: 20050328
  Serious: Yes (Hospitalization)
  Sender: FDA-Public Use
  Company Number: None

PATIENT
  Age: 30 Year
  Sex: Male
  Weight: 73.0291 kg

DRUGS (1)
  1. RISPERIDONE [Suspect]
     Dosage: 3 MG PO;  25MG CONSTA,  PO + IM

REACTIONS (1)
  - PRIAPISM [None]
